FAERS Safety Report 12926760 (Version 1)
Quarter: 2016Q4

REPORT INFORMATION
  Report Type: Spontaneous
  Country: US (occurrence: US)
  Receive Date: 20161108
  Receipt Date: 20161108
  Transmission Date: 20170207
  Serious: Yes (Hospitalization)
  Sender: FDA-Public Use
  Company Number: US-ASTRAZENECA-2016SF15675

PATIENT
  Sex: Female

DRUGS (1)
  1. BRILINTA [Suspect]
     Active Substance: TICAGRELOR
     Route: 048

REACTIONS (12)
  - Headache [Unknown]
  - Fatigue [Not Recovered/Not Resolved]
  - Malaise [Unknown]
  - Nausea [Not Recovered/Not Resolved]
  - Contusion [Unknown]
  - Rectal haemorrhage [Unknown]
  - Skin haemorrhage [Unknown]
  - Hepatic steatosis [Unknown]
  - Post procedural complication [Unknown]
  - Chest discomfort [Unknown]
  - Haematochezia [Unknown]
  - Dizziness [Not Recovered/Not Resolved]

NARRATIVE: CASE EVENT DATE: 20161030
